FAERS Safety Report 5061597-4 (Version None)
Quarter: 2006Q3

REPORT INFORMATION
  Report Type: 
  Country: None (occurrence: None)
  Receive Date: 20060721
  Receipt Date: 20060713
  Transmission Date: 20061208
  Serious: Yes (Hospitalization)
  Sender: FDA-Public Use
  Company Number: 2006-07-0827

PATIENT
  Age: 48 Year
  Sex: Male

DRUGS (9)
  1. PEG-INTRON [Suspect]
     Indication: HEPATITIS C
     Dosage: SUBCUTANEOUS
     Route: 058
     Dates: start: 20060616, end: 20060630
  2. REBETOL [Suspect]
     Indication: HEPATITIS C
     Dosage: ORAL
     Route: 048
     Dates: start: 20060616, end: 20060630
  3. GABAPENTIN [Concomitant]
  4. HUMULIN R INJECTABLE SOLUTION [Concomitant]
  5. LANTUS [Concomitant]
  6. METOCLOPRAMIDE HYDROCHLORIDE INJECTABLE SOLUTION [Concomitant]
  7. PROMETHAZINE HYDROCHLORIDE TABLETS [Concomitant]
  8. TRAMADOL HYDROCHLORIDE TABLETS [Concomitant]
  9. VIAGRA [Concomitant]

REACTIONS (2)
  - BLOOD GLUCOSE INCREASED [None]
  - GASTRITIS [None]
